FAERS Safety Report 20729772 (Version 1)
Quarter: 2022Q2

REPORT INFORMATION
  Report Type: Spontaneous
  Country: TW (occurrence: None)
  Receive Date: 20220420
  Receipt Date: 20220420
  Transmission Date: 20220721
  Serious: Yes (Hospitalization, Other)
  Sender: FDA-Public Use
  Company Number: TW-ROCHE-3078122

PATIENT
  Age: 61 Year
  Sex: Female
  Weight: 47.8 kg

DRUGS (5)
  1. MABTHERA [Suspect]
     Active Substance: RITUXIMAB
     Indication: Rheumatoid arthritis
     Route: 042
     Dates: start: 20211228, end: 20220114
  2. PIPERACILLIN SODIUM\TAZOBACTAM SODIUM [Concomitant]
     Active Substance: PIPERACILLIN SODIUM\TAZOBACTAM SODIUM
     Indication: Sepsis
     Route: 042
     Dates: start: 20220222, end: 20220302
  3. PIPERACILLIN SODIUM\TAZOBACTAM SODIUM [Concomitant]
     Active Substance: PIPERACILLIN SODIUM\TAZOBACTAM SODIUM
     Indication: Respiratory failure
  4. TARGOCID [Concomitant]
     Active Substance: TEICOPLANIN
     Indication: Sepsis
     Route: 042
     Dates: start: 20220228, end: 20220322
  5. TARGOCID [Concomitant]
     Active Substance: TEICOPLANIN
     Indication: Respiratory failure

REACTIONS (5)
  - Sepsis [Recovering/Resolving]
  - Respiratory failure [Recovering/Resolving]
  - Staphylococcal bacteraemia [Unknown]
  - Pseudomonas infection [Unknown]
  - Acid fast bacilli infection [Unknown]

NARRATIVE: CASE EVENT DATE: 20220220
